FAERS Safety Report 9883588 (Version 1)
Quarter: 2014Q1

REPORT INFORMATION
  Report Type: Spontaneous
  Country: IT (occurrence: IT)
  Receive Date: 20140210
  Receipt Date: 20140210
  Transmission Date: 20141002
  Serious: Yes (Death)
  Sender: FDA-Public Use
  Company Number: IT-ROCHE-1341380

PATIENT
  Age: 65 Year
  Sex: Female

DRUGS (3)
  1. RITUXIMAB [Suspect]
     Indication: B-CELL LYMPHOMA
     Route: 065
  2. FLUDARABINE [Suspect]
     Indication: B-CELL LYMPHOMA
     Route: 065
  3. CYCLOFOSFAMIDE [Suspect]
     Indication: B-CELL LYMPHOMA
     Route: 065

REACTIONS (1)
  - Progressive multifocal leukoencephalopathy [Fatal]
